FAERS Safety Report 25108658 (Version 1)
Quarter: 2025Q1

REPORT INFORMATION
  Report Type: Report from Study
  Country: CA (occurrence: CA)
  Receive Date: 20250322
  Receipt Date: 20250322
  Transmission Date: 20250409
  Serious: Yes (Other)
  Sender: ABBVIE
  Company Number: CA-ABBVIE-6180868

PATIENT
  Sex: Male

DRUGS (1)
  1. SKYRIZI [Suspect]
     Active Substance: RISANKIZUMAB-RZAA
     Indication: Crohn^s disease
     Route: 058

REACTIONS (8)
  - Intestinal resection [Unknown]
  - Anastomotic complication [Unknown]
  - Wound [Unknown]
  - Wound infection [Unknown]
  - Infection [Not Recovered/Not Resolved]
  - Diarrhoea [Unknown]
  - Impaired healing [Unknown]
  - Tracheostomy [Unknown]
